FAERS Safety Report 4950132-4 (Version None)
Quarter: 2006Q1

REPORT INFORMATION
  Report Type: 
  Country: None (occurrence: None)
  Receive Date: 20060316
  Receipt Date: 20060227
  Transmission Date: 20060701
  Serious: Yes (Other)
  Sender: FDA-Public Use
  Company Number: GB-SHR-03-006921

PATIENT
  Age: 42 Year
  Sex: Female

DRUGS (1)
  1. CAMPATH [Suspect]
     Indication: MULTIPLE SCLEROSIS
     Dosage: 20 MG, 1X/DAY
     Dates: start: 20020707, end: 20020712

REACTIONS (6)
  - ANURIA [None]
  - DIALYSIS [None]
  - FATIGUE [None]
  - GOODPASTURE'S SYNDROME [None]
  - RENAL FAILURE ACUTE [None]
  - SCAR [None]
